APPROVED DRUG PRODUCT: PHOSPHOLINE IODIDE
Active Ingredient: ECHOTHIOPHATE IODIDE
Strength: 0.125%
Dosage Form/Route: FOR SOLUTION;OPHTHALMIC
Application: N011963 | Product #001
Applicant: FERA PHARMACEUTICALS LLC
Approved: Approved Prior to Jan 1, 1982 | RLD: Yes | RS: Yes | Type: RX